FAERS Safety Report 7583823-X (Version None)
Quarter: 2011Q2

REPORT INFORMATION
  Report Type: 
  Country: None (occurrence: None)
  Receive Date: 20110531
  Receipt Date: 20100920
  Transmission Date: 20111010
  Serious: Yes (Other)
  Sender: FDA-Public Use
  Company Number: 315106

PATIENT
  Sex: Female

DRUGS (2)
  1. ACTIVELLA [Suspect]
     Indication: HORMONE THERAPY
     Dosage: ORAL
     Route: 048
  2. ESTRADIOL [Suspect]
     Indication: HORMONE THERAPY
     Dosage: ORAL
     Route: 048

REACTIONS (1)
  - BREAST CANCER [None]
